FAERS Safety Report 10967866 (Version 1)
Quarter: 2015Q1

REPORT INFORMATION
  Report Type: Spontaneous
  Country: IT (occurrence: IT)
  Receive Date: 20150330
  Receipt Date: 20150330
  Transmission Date: 20150721
  Serious: Yes (Hospitalization, Other)
  Sender: FDA-Public Use
  Company Number: IT-GLAXOSMITHKLINE-IT2015GSK039482

PATIENT
  Age: 43 Year
  Sex: Female

DRUGS (3)
  1. FLUOXETINE [Suspect]
     Active Substance: FLUOXETINE\FLUOXETINE HYDROCHLORIDE
     Indication: PRODUCT USED FOR UNKNOWN INDICATION
     Dosage: 20 UNK, SINGLE
     Route: 048
     Dates: start: 20150202, end: 20150202
  2. GARDENALE [Suspect]
     Active Substance: PHENOBARBITAL
     Indication: PRODUCT USED FOR UNKNOWN INDICATION
     Dosage: 20 UNK, SINGLE
     Route: 048
     Dates: start: 20150202, end: 20150202
  3. LAMOTRIGINE. [Suspect]
     Active Substance: LAMOTRIGINE
     Indication: PRODUCT USED FOR UNKNOWN INDICATION
     Dosage: 15 UNK, SINGLE
     Route: 048
     Dates: start: 20150202, end: 20150202

REACTIONS (2)
  - Somnolence [Recovering/Resolving]
  - Suicide attempt [Unknown]

NARRATIVE: CASE EVENT DATE: 20150202
